FAERS Safety Report 17514372 (Version 1)
Quarter: 2020Q1

REPORT INFORMATION
  Report Type: Report from Study
  Country: US (occurrence: US)
  Receive Date: 20200307
  Receipt Date: 20200307
  Transmission Date: 20200409
  Serious: Yes (Hospitalization, Other)
  Sender: FDA-Public Use
  Company Number: NVSC2020US064249

PATIENT
  Age: 65 Year
  Sex: Male
  Weight: 108 kg

DRUGS (5)
  1. LAMPRENE [Suspect]
     Active Substance: CLOFAZIMINE
     Indication: MYCOBACTERIUM CHELONAE INFECTION
     Dosage: 100 MG, QD
     Route: 065
  2. TIGECYCLINE. [Concomitant]
     Active Substance: TIGECYCLINE
     Indication: MYCOBACTERIUM CHELONAE INFECTION
     Dosage: 25 MG, Q12H
     Route: 042
     Dates: start: 20200103
  3. TOBRAMYCIN. [Concomitant]
     Active Substance: TOBRAMYCIN
     Indication: MYCOBACTERIUM CHELONAE INFECTION
     Dosage: 272 MG
     Route: 065
     Dates: start: 20200128, end: 20200204
  4. AZITHROMYCIN ANHYDROUS. [Concomitant]
     Active Substance: AZITHROMYCIN ANHYDROUS
     Indication: MYCOBACTERIUM CHELONAE INFECTION
     Dosage: 500 MG, QD
     Route: 048
     Dates: start: 20200103
  5. CELLCEPT [Concomitant]
     Active Substance: MYCOPHENOLATE MOFETIL\MYCOPHENOLATE MOFETIL HYDROCHLORIDE
     Indication: MYCOBACTERIUM CHELONAE INFECTION
     Route: 065

REACTIONS (28)
  - Red blood cell count decreased [Unknown]
  - Cough [Unknown]
  - Protein total decreased [Unknown]
  - Haematocrit decreased [Unknown]
  - Degenerative bone disease [Unknown]
  - Blood pressure increased [Unknown]
  - Tremor [Unknown]
  - Fall [Unknown]
  - White blood cell count decreased [Unknown]
  - Dyskinesia [Unknown]
  - Carbon dioxide increased [Unknown]
  - Muscular weakness [Not Recovered/Not Resolved]
  - Abdominal infection [Unknown]
  - Haemoglobin decreased [Unknown]
  - Dizziness postural [Not Recovered/Not Resolved]
  - Blood urea increased [Unknown]
  - Skin hyperpigmentation [Unknown]
  - Heart rate increased [Unknown]
  - Back pain [Not Recovered/Not Resolved]
  - Blood creatinine increased [Unknown]
  - Diarrhoea [Unknown]
  - Spinal stenosis [Unknown]
  - Fatigue [Unknown]
  - Bowel movement irregularity [Unknown]
  - Dyspnoea [Unknown]
  - Neutrophil count decreased [Unknown]
  - Mean cell haemoglobin concentration decreased [Unknown]
  - Brain stem syndrome [Unknown]

NARRATIVE: CASE EVENT DATE: 202002
